FAERS Safety Report 20605700 (Version 1)
Quarter: 2022Q1

REPORT INFORMATION
  Report Type: Spontaneous
  Country: US (occurrence: US)
  Receive Date: 20220317
  Receipt Date: 20220317
  Transmission Date: 20220423
  Serious: Yes (Other)
  Sender: FDA-Public Use
  Company Number: US-APOTEX-2022AP004832

PATIENT
  Age: 70 Year
  Sex: Male

DRUGS (3)
  1. GEMCITABINE [Suspect]
     Active Substance: GEMCITABINE
     Indication: Adenocarcinoma pancreas
     Dosage: 1000 MILLIGRAM/SQ. METER ON DAYS 1, 8, 5 OF 28 DAYS CYCLE
     Route: 065
  2. PACLITAXEL [Suspect]
     Active Substance: PACLITAXEL
     Indication: Adenocarcinoma pancreas
     Dosage: 125 MILLIGRAM/SQ. METER ON DAY 1,8,15 OF 28 DAY CYCLE
     Route: 065
  3. NAPABUCASIN [Suspect]
     Active Substance: NAPABUCASIN
     Indication: Adenocarcinoma pancreas
     Dosage: 240 MILLIGRAM, BID
     Route: 065

REACTIONS (1)
  - Cystoid macular oedema [Recovered/Resolved]
